FAERS Safety Report 9405823 (Version 2)
Quarter: 2013Q3

REPORT INFORMATION
  Report Type: Report from Study
  Country: FR (occurrence: FR)
  Receive Date: 20130717
  Receipt Date: 20130905
  Transmission Date: 20140515
  Serious: Yes (Hospitalization)
  Sender: FDA-Public Use
  Company Number: FR-CELGENEUS-056-C4047-13070685

PATIENT
  Age: 65 Year
  Sex: Male
  Weight: 98 kg

DRUGS (11)
  1. CC-4047 [Suspect]
     Indication: PLASMA CELL MYELOMA
     Dosage: 4 MILLIGRAM
     Route: 048
     Dates: start: 20130314
  2. CC-4047 [Suspect]
     Dosage: 4 MILLIGRAM
     Route: 048
     Dates: start: 20130531, end: 20130616
  3. CC-4047 [Suspect]
     Route: 048
     Dates: start: 20130627
  4. DEXAMETHASONE [Suspect]
     Indication: PLASMA CELL MYELOMA
     Route: 048
     Dates: start: 20130314
  5. DEXAMETHASONE [Suspect]
     Dosage: 40 MILLIGRAM
     Route: 048
     Dates: start: 20130531, end: 20130616
  6. DEXAMETHASONE [Suspect]
     Route: 065
     Dates: start: 20130627
  7. LYRICA [Concomitant]
     Indication: PAIN
     Dosage: 300 MILLIGRAM
     Route: 048
  8. LAMICTAL [Concomitant]
     Indication: EPILEPSY
     Dosage: 100 MILLIGRAM
     Route: 048
     Dates: start: 20110818
  9. SEROPLEX [Concomitant]
     Indication: DEPRESSION
     Dosage: 10 MILLIGRAM
     Route: 048
  10. ASPEGIC [Concomitant]
     Indication: PAIN
     Dosage: 100 MILLIGRAM
     Route: 048
     Dates: start: 20130314
  11. TRANXENE [Concomitant]
     Indication: DEPRESSION
     Dosage: 40 MILLIGRAM
     Route: 048
     Dates: start: 20130314

REACTIONS (1)
  - Lobar pneumonia [Recovered/Resolved]
